FAERS Safety Report 6076842-6 (Version None)
Quarter: 2009Q1

REPORT INFORMATION
  Report Type: 
  Country: None (occurrence: None)
  Receive Date: 20090213
  Receipt Date: 20090202
  Transmission Date: 20090719
  Serious: Yes (Hospitalization)
  Sender: FDA-Public Use
  Company Number: US-ELI_LILLY_AND_COMPANY-US200901002667

PATIENT
  Sex: Female

DRUGS (8)
  1. ZYPREXA [Suspect]
     Indication: BIPOLAR DISORDER
     Dosage: 2.5 MG, DAILY (1/D)
     Dates: start: 20030101, end: 20080701
  2. ZYPREXA [Suspect]
     Dosage: 1.25 MG, UNK
     Dates: start: 20080701, end: 20080801
  3. LITHIUM CARBONATE [Concomitant]
     Dosage: 300 MG, UNK
     Dates: start: 19970101
  4. LITHIUM CARBONATE [Concomitant]
     Dosage: 600 MG, EACH EVENING
  5. NORVASC [Concomitant]
  6. DETROL [Concomitant]
  7. GESTODENE AND ETHINYL ESTRADIOL [Concomitant]
     Dosage: UNK, MONTHLY (1/M)
  8. ARICEPT [Concomitant]
     Dosage: 10 MG, EACH EVENING
     Dates: start: 20070103

REACTIONS (2)
  - HOSPITALISATION [None]
  - TARDIVE DYSKINESIA [None]
